FAERS Safety Report 7428650 (Version 8)
Quarter: 2015Q2

REPORT INFORMATION
  Report Type: Spontaneous
  Country: US (occurrence: US)
  Receive Date: 20100623
  Receipt Date: 20150615
  Transmission Date: 20150821
  Serious: Yes (Hospitalization)
  Sender: FDA-Public Use
  Company Number: US-BAYER-201025479NA

PATIENT
  Age: 24 Year
  Sex: Female
  Weight: 54.42 kg

DRUGS (10)
  1. YASMIN [Suspect]
     Active Substance: DROSPIRENONE\ETHINYL ESTRADIOL
     Indication: CONTRACEPTION
     Dosage: UNK
     Dates: start: 20040922, end: 200503
  2. ANTIPYRINE W/BENZOCAINE [Concomitant]
     Dosage: 2 DROPS INTO PAINFUL EAR Q 2 H PRN
     Route: 061
     Dates: start: 20041202
  3. YAZ [Suspect]
     Active Substance: DROSPIRENONE\ETHINYL ESTRADIOL
  4. MARIJUANA [Concomitant]
     Active Substance: CANNABIS SATIVA SUBSP. INDICA TOP
     Dosage: UNK
     Dates: end: 20050317
  5. IBUPROFEN. [Concomitant]
     Active Substance: IBUPROFEN
     Dosage: UNK
     Dates: start: 2002, end: 2008
  6. AMOXICILLIN. [Concomitant]
     Active Substance: AMOXICILLIN
     Indication: INFECTION
     Dosage: 875 MG, ONE TABLET TID
     Route: 048
     Dates: start: 20041202
  7. H-C TUSSIVE [Concomitant]
     Indication: COUGH
     Dosage: ONE OR TWO TEASPOONS 6 HOURS AS NEEDED FOR
     Route: 048
     Dates: start: 20041202
  8. DILANTIN [Concomitant]
     Active Substance: PHENYTOIN
     Indication: SEIZURE
     Dosage: UNK
     Dates: start: 2005
  9. YASMIN [Suspect]
     Active Substance: DROSPIRENONE\ETHINYL ESTRADIOL
     Indication: CONTRACEPTION
     Dates: start: 200312
  10. H-C TUSSIVE [Concomitant]
     Indication: NASAL CONGESTION

REACTIONS (13)
  - Mental status changes [None]
  - Cerebral ischaemia [None]
  - Mobility decreased [None]
  - Facial paresis [None]
  - Hypoaesthesia [None]
  - Aphasia [None]
  - Hemiplegia [None]
  - Dysarthria [None]
  - Hemiparesis [None]
  - Cerebrovascular accident [None]
  - Depression [None]
  - Cerebral artery thrombosis [None]
  - Anxiety [None]

NARRATIVE: CASE EVENT DATE: 20050318
